FAERS Safety Report 15885099 (Version 3)
Quarter: 2019Q1

REPORT INFORMATION
  Report Type: Not Available
  Country: US (occurrence: US)
  Receive Date: 20190129
  Receipt Date: 20190319
  Transmission Date: 20190417
  Serious: No
  Sender: FDA-Public Use
  Company Number: US-NEUROCRINE BIOSCIENCES INC.-2019NBI00213

PATIENT
  Age: 67 Year
  Sex: Female

DRUGS (9)
  1. IMIPRAMINE [Concomitant]
     Active Substance: IMIPRAMINE
  2. ABILIFY [Concomitant]
     Active Substance: ARIPIPRAZOLE
     Indication: DEPRESSION
     Route: 048
  3. IMIPRAMINE [Concomitant]
     Active Substance: IMIPRAMINE
     Indication: DEPRESSION
     Dosage: 150 (UNIT UNSPECIFIED)
     Route: 048
  4. ADDERALL [Concomitant]
     Active Substance: AMPHETAMINE ASPARTATE\AMPHETAMINE SULFATE\DEXTROAMPHETAMINE SACCHARATE\DEXTROAMPHETAMINE SULFATE
     Indication: APNOEA
     Dosage: 30  (UNIT UNSPECIFIED)
     Route: 048
  5. LAMICTAL [Concomitant]
     Active Substance: LAMOTRIGINE
     Indication: ANXIETY
     Dosage: 200 (UNIT UNSPECIFIED)
     Route: 048
  6. INGREZZA [Suspect]
     Active Substance: VALBENAZINE
     Route: 048
     Dates: start: 20190115, end: 20190224
  7. EFFEXOR XR [Concomitant]
     Active Substance: VENLAFAXINE HYDROCHLORIDE
     Indication: DEPRESSION
     Dosage: 75 (UNIT UNSPECIFIED)
     Route: 048
  8. XANAX [Concomitant]
     Active Substance: ALPRAZOLAM
     Indication: ANXIETY
     Dosage: 0.25 (UNIT UNSPECIFIED)
     Route: 048
  9. INGREZZA [Suspect]
     Active Substance: VALBENAZINE
     Indication: TARDIVE DYSKINESIA
     Route: 048
     Dates: start: 20190107, end: 20190114

REACTIONS (3)
  - Tachycardia [Recovered/Resolved]
  - Drug ineffective [None]
  - Dyspnoea [Recovered/Resolved]

NARRATIVE: CASE EVENT DATE: 2019
